FAERS Safety Report 9867642 (Version 2)
Quarter: 2014Q1

REPORT INFORMATION
  Report Type: Report from Study
  Country: PL (occurrence: PL)
  Receive Date: 20140204
  Receipt Date: 20140204
  Transmission Date: 20141002
  Serious: Yes (Hospitalization)
  Sender: FDA-Public Use
  Company Number: PL-SANOFI-AVENTIS-2012SA045408

PATIENT
  Age: 38 Year
  Sex: Female
  Weight: 62.4 kg

DRUGS (4)
  1. TERIFLUNOMIDE [Suspect]
     Indication: MULTIPLE SCLEROSIS RELAPSE
     Route: 048
     Dates: start: 20110726
  2. HYDROCHLOROTHIAZIDE/LOSARTAN [Concomitant]
     Route: 048
     Dates: start: 20111120
  3. TULIP [Concomitant]
     Route: 048
     Dates: start: 20111123
  4. HARMONET [Concomitant]
     Dosage: DOSE:1 UNIT(S)
     Route: 048
     Dates: start: 20030720

REACTIONS (1)
  - Sinus tachycardia [Recovered/Resolved]
